FAERS Safety Report 11475044 (Version 6)
Quarter: 2016Q4

REPORT INFORMATION
  Report Type: Spontaneous
  Country: US (occurrence: US)
  Receive Date: 20150908
  Receipt Date: 20161227
  Transmission Date: 20170206
  Serious: Yes (Other)
  Sender: FDA-Public Use
  Company Number: US-BAXTER-2015BAX047643

PATIENT
  Sex: Female
  Weight: 59 kg

DRUGS (8)
  1. ALBUTEROL SULFATE HFA [Concomitant]
     Active Substance: ALBUTEROL SULFATE
     Indication: PRODUCT USED FOR UNKNOWN INDICATION
     Dosage: AEROSOL INHALER, INHALE 2 PUFF BY INHALATION ROUTE, EVERY 4-6 HRS AS NEEDED
     Route: 055
  2. LEVAQUIN [Concomitant]
     Active Substance: LEVOFLOXACIN
     Indication: PRODUCT USED FOR UNKNOWN INDICATION
     Route: 065
  3. FLUCONAZOLE INJECTION, USP [Suspect]
     Active Substance: FLUCONAZOLE
     Indication: COCCIDIOIDOMYCOSIS
     Dosage: 2 TABLETS
     Route: 042
     Dates: start: 2011
  4. METRONIDAZOLE INJECTION, USP [Suspect]
     Active Substance: METRONIDAZOLE
     Indication: PRODUCT USED FOR UNKNOWN INDICATION
     Route: 065
  5. BISACODYL. [Concomitant]
     Active Substance: BISACODYL
     Indication: CONSTIPATION
     Dosage: 1 SUPPOSITORY EVERY DAY AS NEEDED
     Route: 054
  6. DIFLUCAN [Suspect]
     Active Substance: FLUCONAZOLE
     Indication: COCCIDIOIDOMYCOSIS
     Route: 065
     Dates: start: 2011
  7. DIFLUCAN [Suspect]
     Active Substance: FLUCONAZOLE
     Dosage: 200 MG IN MORNING AND 200 MG IN NIGHT
     Route: 048
     Dates: start: 2015
  8. NORCO [Concomitant]
     Active Substance: ACETAMINOPHEN\HYDROCODONE BITARTRATE
     Indication: PAIN
     Dosage: 5MG-325 MG, 1 TABLET EVERY 4 HRS AS NEEDED
     Route: 048

REACTIONS (5)
  - Rash generalised [Unknown]
  - Drug hypersensitivity [Recovered/Resolved]
  - Drug hypersensitivity [Unknown]
  - Throat tightness [Unknown]
  - Rash papular [Unknown]

NARRATIVE: CASE EVENT DATE: 2011
